FAERS Safety Report 17213737 (Version 1)
Quarter: 2019Q4

REPORT INFORMATION
  Report Type: Spontaneous
  Country: FR (occurrence: FR)
  Receive Date: 20191230
  Receipt Date: 20191230
  Transmission Date: 20200122
  Serious: Yes (Other)
  Sender: FDA-Public Use
  Company Number: FR-US-PROVELL PHARMACEUTICALS LLC-9024374

PATIENT
  Age: 43 Year
  Sex: Male
  Weight: 83 kg

DRUGS (1)
  1. LEVOTHYROX NF [Suspect]
     Active Substance: LEVOTHYROXINE SODIUM
     Indication: POST PROCEDURAL HYPOTHYROIDISM
     Route: 048

REACTIONS (33)
  - Sleep disorder [Not Recovered/Not Resolved]
  - Tri-iodothyronine free increased [Not Recovered/Not Resolved]
  - Dizziness [Not Recovered/Not Resolved]
  - Stress [Not Recovered/Not Resolved]
  - Disturbance in attention [Not Recovered/Not Resolved]
  - Memory impairment [Unknown]
  - Mood altered [Unknown]
  - Major depression [Unknown]
  - Fatigue [Not Recovered/Not Resolved]
  - Ageusia [Unknown]
  - Weight increased [Not Recovered/Not Resolved]
  - Mood swings [Unknown]
  - Nausea [Unknown]
  - Malaise [Unknown]
  - Throat irritation [Unknown]
  - Libido decreased [Unknown]
  - Arthralgia [Unknown]
  - Thyroxine free increased [Not Recovered/Not Resolved]
  - Visual acuity reduced [Not Recovered/Not Resolved]
  - Abdominal pain upper [Unknown]
  - Decreased activity [Unknown]
  - Avoidant personality disorder [Unknown]
  - Depressed mood [Unknown]
  - Muscle spasms [Unknown]
  - Depression [Unknown]
  - Loss of personal independence in daily activities [Unknown]
  - Decreased interest [Not Recovered/Not Resolved]
  - Headache [Not Recovered/Not Resolved]
  - Insomnia [Unknown]
  - Capillary disorder [Unknown]
  - Asthenia [Unknown]
  - Pruritus [Unknown]
  - Blood thyroid stimulating hormone decreased [Recovered/Resolved]

NARRATIVE: CASE EVENT DATE: 20170117
